FAERS Safety Report 15129370 (Version 1)
Quarter: 2018Q3

REPORT INFORMATION
  Report Type: Spontaneous
  Country: US (occurrence: US)
  Receive Date: 20180711
  Receipt Date: 20180711
  Transmission Date: 20181010
  Serious: Yes (Hospitalization, Other)
  Sender: FDA-Public Use
  Company Number: US-GLAXOSMITHKLINE-US2018120283

PATIENT
  Age: 67 Year
  Sex: Male

DRUGS (2)
  1. VENTOLIN HFA [Suspect]
     Active Substance: ALBUTEROL SULFATE
     Indication: DYSPNOEA
  2. VENTOLIN HFA [Suspect]
     Active Substance: ALBUTEROL SULFATE
     Indication: CHRONIC OBSTRUCTIVE PULMONARY DISEASE
     Dosage: 1 PUFF(S), PRN
     Route: 055
     Dates: start: 1998

REACTIONS (11)
  - Cardiac pacemaker insertion [Recovering/Resolving]
  - Wrong technique in product usage process [Unknown]
  - Communication disorder [Unknown]
  - Loss of consciousness [Recovering/Resolving]
  - Cardiac pacemaker insertion [Unknown]
  - Fluid retention [Recovering/Resolving]
  - Dyspnoea [Recovered/Resolved]
  - Wrong technique in device usage process [Unknown]
  - Diabetic ketoacidosis [Recovering/Resolving]
  - Blood glucose increased [Unknown]
  - Cardiac operation [Recovering/Resolving]

NARRATIVE: CASE EVENT DATE: 201711
